FAERS Safety Report 4603149-3 (Version None)
Quarter: 2005Q1

REPORT INFORMATION
  Report Type: 
  Country: None (occurrence: None)
  Receive Date: 20050307
  Receipt Date: 20050217
  Transmission Date: 20050727
  Serious: Yes (Hospitalization)
  Sender: FDA-Public Use
  Company Number: A02200500392

PATIENT
  Age: 42 Year
  Sex: Male

DRUGS (9)
  1. KAYEXALATE [Suspect]
     Dosage: ORAL
     Route: 048
  2. NEORAL [Concomitant]
  3. CELLCEPT [Concomitant]
  4. BACTRIM (SULFAMETHOXAZOLE, TRIMETHOPRIME) [Concomitant]
  5. ORACILLINE (PHENOXYMETHYLENICILLIN) [Concomitant]
  6. VALACYCLOVIR HCL [Concomitant]
  7. LEDERFOLINE (CALCIUM FOLINATE) [Concomitant]
  8. OMEPRAZOLE [Concomitant]
  9. CORTICOIDS NOS [Concomitant]

REACTIONS (8)
  - COLITIS ULCERATIVE [None]
  - DIARRHOEA [None]
  - ESCHERICHIA INFECTION [None]
  - GRAFT VERSUS HOST DISEASE [None]
  - LIVER DISORDER [None]
  - LUNG DISORDER [None]
  - RECTAL HAEMORRHAGE [None]
  - THROMBOTIC MICROANGIOPATHY [None]
